FAERS Safety Report 18598434 (Version 3)
Quarter: 2021Q3

REPORT INFORMATION
  Report Type: Report from Study
  Country: US (occurrence: US)
  Receive Date: 20201210
  Receipt Date: 20210728
  Transmission Date: 20211014
  Serious: Yes (Death)
  Sender: FDA-Public Use
  Company Number: US-ROCHE-2723251

PATIENT
  Age: 61 Year
  Sex: Male

DRUGS (14)
  1. CAPECITABINE. [Suspect]
     Active Substance: CAPECITABINE
     Indication: OESOPHAGEAL ADENOCARCINOMA
     Dosage: THE MOST RECENT DOSE WAS ADMINISTERD ON 17/NOV/2020?DAYS 1?15 OF EACH 21?DAY CYCLE
     Route: 048
     Dates: start: 20201015, end: 20201117
  2. SUCRALFATE. [Concomitant]
     Active Substance: SUCRALFATE
     Dates: start: 20201029, end: 20201117
  3. LORAZEPAM. [Concomitant]
     Active Substance: LORAZEPAM
     Dates: start: 20201116, end: 20201117
  4. COMPAZINE [Concomitant]
     Active Substance: PROCHLORPERAZINE MALEATE
     Dates: start: 20201105, end: 20201117
  5. ESOMEPRAZOLE. [Concomitant]
     Active Substance: ESOMEPRAZOLE MAGNESIUM
     Dates: start: 20201029, end: 20201117
  6. TUMS [Concomitant]
     Active Substance: CALCIUM CARBONATE
     Dates: start: 20201016, end: 20201117
  7. ESOMEPRAZOLE. [Concomitant]
     Active Substance: ESOMEPRAZOLE MAGNESIUM
     Dates: start: 2015, end: 20201029
  8. TYLENOL [Concomitant]
     Active Substance: ACETAMINOPHEN
     Dates: start: 20201015, end: 20201117
  9. OXALIPLATIN. [Suspect]
     Active Substance: OXALIPLATIN
     Indication: OESOPHAGEAL ADENOCARCINOMA
     Dosage: THE MOST RECENT DOSE WAS ADMINISTERED ON 05/NOV/2020?DAYS 1?15 OF EACH 21?DAY CYCLE
     Route: 042
     Dates: start: 20201015, end: 20201117
  10. OLANZAPINE. [Concomitant]
     Active Substance: OLANZAPINE
     Dates: start: 20201116, end: 20201117
  11. EPINEPHRINE. [Concomitant]
     Active Substance: EPINEPHRINE
  12. DKN?01. [Suspect]
     Active Substance: DKN-01
     Indication: OESOPHAGEAL ADENOCARCINOMA
     Dosage: THE MOST RECENT DOSE WAS ADMINISTERED ON 05/NOV/2020?DAYS 1?15 OF EACH 21?DAY CYCLE
     Route: 042
     Dates: start: 20201015, end: 20201117
  13. ONDANSETRON [Concomitant]
     Active Substance: ONDANSETRON
     Dates: start: 20201009, end: 20201117
  14. MAGNESIUM CARBONATE [Concomitant]
     Active Substance: MAGNESIUM CARBONATE
     Dates: start: 20201016, end: 20201117

REACTIONS (1)
  - Pulmonary embolism [Fatal]

NARRATIVE: CASE EVENT DATE: 20201117
